FAERS Safety Report 5415481-4 (Version None)
Quarter: 2007Q3

REPORT INFORMATION
  Report Type: 
  Country: None (occurrence: None)
  Receive Date: 20070815
  Receipt Date: 20070808
  Transmission Date: 20080115
  Serious: Yes (Hospitalization)
  Sender: FDA-Public Use
  Company Number: GB-ROCHE-511288

PATIENT
  Age: 55 Year
  Sex: Female
  Weight: 78.1 kg

DRUGS (5)
  1. XENICAL [Suspect]
     Indication: OBESITY
     Route: 048
     Dates: start: 20070321
  2. RAMIPRIL [Concomitant]
     Indication: HYPERTENSION
     Route: 048
  3. ASPIRIN [Concomitant]
     Indication: CARDIAC DISORDER
     Route: 048
  4. DIHYDROCODEINE BITARTRATE INJ [Concomitant]
     Indication: BACK PAIN
     Route: 048
  5. GTN-S [Concomitant]
     Indication: ANGINA PECTORIS
     Dosage: DOSAGE FORM REPORTED AS SPRAY.
     Route: 048

REACTIONS (2)
  - EPISTAXIS [None]
  - FAECES DISCOLOURED [None]
